FAERS Safety Report 10202801 (Version 2)
Quarter: 2014Q3

REPORT INFORMATION
  Report Type: Spontaneous
  Country: US (occurrence: US)
  Receive Date: 20140528
  Receipt Date: 20140714
  Transmission Date: 20150326
  Serious: No
  Sender: FDA-Public Use
  Company Number: US-009507513-1405USA012960

PATIENT
  Sex: Female

DRUGS (2)
  1. OXYTROL FOR WOMEN [Suspect]
     Active Substance: OXYBUTYNIN
     Indication: PRODUCT USED FOR UNKNOWN INDICATION
     Dosage: UNK UNK, UNKNOWN
     Route: 062
     Dates: start: 20140318
  2. EPERISONE [Suspect]
     Active Substance: EPERISONE
     Indication: THERAPEUTIC PROCEDURE
     Dosage: UNK, UNKNOWN

REACTIONS (7)
  - Pruritus generalised [Recovered/Resolved]
  - Ankle fracture [Unknown]
  - Product lot number issue [Unknown]
  - Osteosynthesis [Unknown]
  - Circumstance or information capable of leading to medication error [Unknown]
  - Product expiration date issue [Unknown]
  - Lower limb fracture [Unknown]

NARRATIVE: CASE EVENT DATE: 2014
